FAERS Safety Report 12626147 (Version 11)
Quarter: 2025Q3

REPORT INFORMATION
  Report Type: Report from Study
  Country: JP (occurrence: JP)
  Receive Date: 20160805
  Receipt Date: 20250818
  Transmission Date: 20251021
  Serious: Yes (Hospitalization, Other)
  Sender: BIOGEN
  Company Number: JP-BIOGEN-2016BI00265829

PATIENT
  Age: 41 Year
  Sex: Male
  Weight: 55 kg

DRUGS (7)
  1. TYSABRI [Suspect]
     Active Substance: NATALIZUMAB
     Indication: Relapsing-remitting multiple sclerosis
     Route: 050
     Dates: start: 20140723, end: 20160427
  2. EPERISONE HYDROCHLORIDE [Concomitant]
     Active Substance: EPERISONE HYDROCHLORIDE
     Indication: Relapsing-remitting multiple sclerosis
     Route: 050
  3. CERCINE [Concomitant]
     Active Substance: DIAZEPAM
     Indication: Depression
     Route: 050
  4. SERTRALINE HYDROCHLORIDE [Concomitant]
     Active Substance: SERTRALINE HYDROCHLORIDE
     Indication: Depression
     Route: 050
  5. GOODMIN [Concomitant]
     Active Substance: BROTIZOLAM
     Indication: Insomnia
     Route: 050
  6. URSO [Concomitant]
     Active Substance: URSODIOL
     Indication: Hepatic function abnormal
     Route: 050
     Dates: end: 20140923
  7. ELDECALCITOL [Concomitant]
     Active Substance: ELDECALCITOL
     Indication: Relapsing-remitting multiple sclerosis
     Route: 050

REACTIONS (2)
  - Progressive multifocal leukoencephalopathy [Recovered/Resolved with Sequelae]
  - Immune reconstitution inflammatory syndrome [Recovered/Resolved with Sequelae]

NARRATIVE: CASE EVENT DATE: 20160612
